FAERS Safety Report 9178827 (Version 1)
Quarter: 2012Q4

REPORT INFORMATION
  Report Type: 
  Country: US (occurrence: US)
  Receive Date: 20121029
  Receipt Date: 20121029
  Transmission Date: 20130627
  Serious: No
  Sender: FDA-Public Use
  Company Number: US-AMGEN-USASP2012053489

PATIENT
  Age: 71 Year
  Sex: Female

DRUGS (4)
  1. ENBREL [Suspect]
     Indication: RHEUMATOID ARTHRITIS
     Dosage: 50 mg, qwk
     Route: 058
     Dates: start: 201002
  2. FUROSEMIDE [Concomitant]
     Dosage: 40 mg, UNK
  3. LISINOPRIL [Concomitant]
     Dosage: 20 mg, UNK
  4. KLOR-CON M10 [Concomitant]
     Dosage: UNK

REACTIONS (2)
  - Vision blurred [Unknown]
  - Epistaxis [Unknown]
